FAERS Safety Report 13325279 (Version 1)
Quarter: 2017Q1

REPORT INFORMATION
  Report Type: Spontaneous
  Country: GB (occurrence: GB)
  Receive Date: 20170310
  Receipt Date: 20170310
  Transmission Date: 20170428
  Serious: Yes (Other)
  Sender: FDA-Public Use
  Company Number: GB-PFIZER INC-2017100647

PATIENT
  Age: 46 Year
  Sex: Female

DRUGS (1)
  1. SULFASALAZINE. [Suspect]
     Active Substance: SULFASALAZINE
     Dosage: 500 MG, UNK

REACTIONS (3)
  - Pruritus [Recovered/Resolved]
  - Swelling face [Recovered/Resolved]
  - Rheumatoid arthritis [Recovered/Resolved]
